FAERS Safety Report 19150923 (Version 2)
Quarter: 2021Q2

REPORT INFORMATION
  Report Type: Other
  Country: IT (occurrence: IT)
  Receive Date: 20210419
  Receipt Date: 20210423
  Transmission Date: 20210717
  Serious: Yes (Other)
  Sender: FDA-Public Use
  Company Number: IT-CELLTRION INC.-2021IT005039

PATIENT

DRUGS (9)
  1. DEURSIL [Concomitant]
     Active Substance: URSODIOL
     Indication: HEPATOTOXICITY
     Dosage: ONGOING, 1 CAPSULE DAY
     Dates: start: 202008
  2. LYRICA [Concomitant]
     Active Substance: PREGABALIN
     Indication: NEUROTOXICITY
     Dosage: DOSE: 1 CAPSULE DAY, ONGOING
     Dates: start: 201910
  3. REAPTAN [Concomitant]
     Active Substance: AMLODIPINE BESYLATE\PERINDOPRIL ARGININE
     Indication: HYPERTENSION
     Dosage: DOSE? 1 CAPSULE DAY, ONGOING
  4. EXEMESTANE. [Concomitant]
     Active Substance: EXEMESTANE
     Dosage: ONGOING, 1 CAPSULE DAY
     Dates: start: 201912
  5. TRASTUZUMAB EMTANSINE [Suspect]
     Active Substance: ADO-TRASTUZUMAB EMTANSINE
     Indication: BREAST NEOPLASM
     Dosage: 300 MG, EVERY 21 DAYS (DOSAGE TEXT: 08/09/2020 THE 9TH DRUG ADMINISTRATION SCHEDULED WAS NOT PERFORM
     Route: 042
     Dates: start: 20200310, end: 20200922
  6. TRASTUZUMAB (UNKNOWN) [Suspect]
     Active Substance: TRASTUZUMAB
     Indication: PRODUCT USED FOR UNKNOWN INDICATION
     Dosage: CURRENTLY THE 9TH ADMINISTRATION WAS PERFORMED AND THE 10TH HAS BEEN AT THE MOMENT NOT PERFORMED DUE
     Route: 065
  7. TRASTUZUMAB EMTANSINE [Suspect]
     Active Substance: ADO-TRASTUZUMAB EMTANSINE
     Dosage: 200 MG, EVERY 21 DAYS (DOSAGE TEXT: 9TH ADMINISTRATION PERFORMED.)
     Route: 042
     Dates: start: 20200922
  8. LEUPRORELIN [Concomitant]
     Active Substance: LEUPROLIDE ACETATE
     Dosage: DOSE? 1 FL (VIAL), ONGOING
     Route: 030
     Dates: start: 20190417
  9. TRASTUZUMAB EMTANSINE [Suspect]
     Active Substance: ADO-TRASTUZUMAB EMTANSINE
     Dosage: 180 MG, EVERY 21 DAYS
     Route: 042
     Dates: start: 20201001

REACTIONS (4)
  - Hyperbilirubinaemia [Not Recovered/Not Resolved]
  - Dysplastic naevus [Unknown]
  - Rash [Unknown]
  - Spider naevus [Unknown]

NARRATIVE: CASE EVENT DATE: 202009
